FAERS Safety Report 9265473 (Version 2)
Quarter: 2013Q2

REPORT INFORMATION
  Report Type: Spontaneous
  Country: JP (occurrence: JP)
  Receive Date: 20130501
  Receipt Date: 20130617
  Transmission Date: 20140414
  Serious: Yes (Other)
  Sender: FDA-Public Use
  Company Number: JP-009507513-1304JPN016182

PATIENT
  Sex: Male

DRUGS (4)
  1. PEGINTRON [Suspect]
     Dosage: 1.6 MCG/KG
     Route: 058
     Dates: start: 20130405, end: 20130412
  2. REBETOL [Suspect]
     Dosage: 800 MG, QD
     Route: 048
     Dates: start: 20130405, end: 20130412
  3. TELAVIC [Suspect]
     Dosage: 2250 MG, QD
     Route: 048
     Dates: start: 20130405, end: 20130408
  4. FEBURIC [Concomitant]
     Route: 048

REACTIONS (1)
  - Erythema multiforme [Recovered/Resolved]
